FAERS Safety Report 16750528 (Version 1)
Quarter: 2019Q3

REPORT INFORMATION
  Report Type: Spontaneous
  Country: US (occurrence: US)
  Receive Date: 20190828
  Receipt Date: 20190828
  Transmission Date: 20191005
  Serious: No
  Sender: FDA-Public Use
  Company Number: US-PFIZER INC-2019368496

PATIENT
  Sex: Female

DRUGS (1)
  1. RELPAX [Suspect]
     Active Substance: ELETRIPTAN HYDROBROMIDE
     Dosage: 40 MG, UNK

REACTIONS (4)
  - Malaise [Unknown]
  - Asthenia [Unknown]
  - Recalled product administered [Unknown]
  - Gastrointestinal disorder [Unknown]
